FAERS Safety Report 9468467 (Version 1)
Quarter: 2013Q3

REPORT INFORMATION
  Report Type: Spontaneous
  Country: US (occurrence: US)
  Receive Date: 20130821
  Receipt Date: 20130821
  Transmission Date: 20140515
  Serious: No
  Sender: FDA-Public Use
  Company Number: US-PFIZER INC-2013238066

PATIENT
  Age: 56 Year
  Sex: Female
  Weight: 77.1 kg

DRUGS (1)
  1. ESTRING [Suspect]
     Indication: HORMONE REPLACEMENT THERAPY
     Dosage: UNK, ONCE IN THREE MONTHS
     Route: 067
     Dates: start: 20130812

REACTIONS (1)
  - Drug ineffective [Unknown]
